FAERS Safety Report 11774013 (Version 2)
Quarter: 2015Q4

REPORT INFORMATION
  Report Type: Report from Study
  Country: US (occurrence: US)
  Receive Date: 20151124
  Receipt Date: 20151124
  Transmission Date: 20160304
  Serious: Yes (Hospitalization)
  Sender: FDA-Public Use
  Company Number: US-BAYER-2015-469233

PATIENT
  Age: 66 Year
  Sex: Female

DRUGS (3)
  1. CLONAZEPAM. [Concomitant]
     Active Substance: CLONAZEPAM
  2. STIVARGA [Suspect]
     Active Substance: REGORAFENIB
     Indication: PLASMA CELL MYELOMA
     Dosage: 160 MG, QD
     Route: 048
     Dates: start: 20151028, end: 20151110
  3. MORPHINE [Concomitant]
     Active Substance: MORPHINE

REACTIONS (6)
  - Off label use [None]
  - Abdominal pain upper [None]
  - Decreased appetite [None]
  - Confusional state [Unknown]
  - Diarrhoea [Not Recovered/Not Resolved]
  - Abdominal pain [Unknown]

NARRATIVE: CASE EVENT DATE: 20151107
